FAERS Safety Report 7130744-2 (Version None)
Quarter: 2010Q4

REPORT INFORMATION
  Report Type: 
  Country: None (occurrence: None)
  Receive Date: 20101201
  Receipt Date: 20101110
  Transmission Date: 20110411
  Serious: No
  Sender: FDA-Public Use
  Company Number: US-B.I. PHARMACEUTICALS,INC./RIDGEFIELD-2010-BP-12677BP

PATIENT
  Sex: Female

DRUGS (6)
  1. ZANTAC 75 [Suspect]
     Route: 048
     Dates: start: 20090101
  2. SUCRALFATE [Suspect]
     Indication: GASTRITIS
     Dates: start: 20100101
  3. DILTIAZEM [Concomitant]
     Indication: HYPERTENSION
  4. FUROSEMIDE [Concomitant]
     Indication: JOINT SWELLING
  5. CALCIUM [Concomitant]
     Indication: PROPHYLAXIS
  6. MULTI-VITAMINS [Concomitant]
     Indication: PROPHYLAXIS

REACTIONS (3)
  - DIARRHOEA [None]
  - GASTRITIS [None]
  - WEIGHT DECREASED [None]
